FAERS Safety Report 8394729-0 (Version None)
Quarter: 2012Q2

REPORT INFORMATION
  Report Type: 
  Country: None (occurrence: None)
  Receive Date: 20120525
  Receipt Date: 20120525
  Transmission Date: 20120825
  Serious: Yes (Other)
  Sender: FDA-Public Use
  Company Number: None

PATIENT
  Age: 10 Year
  Sex: Male
  Weight: 43.0917 kg

DRUGS (1)
  1. AUGMENTIN '875' [Suspect]
     Indication: PHARYNGITIS STREPTOCOCCAL
     Dosage: 1 TAB 2X DAILY PO
     Route: 048
     Dates: start: 20120524, end: 20120524

REACTIONS (3)
  - THINKING ABNORMAL [None]
  - HEADACHE [None]
  - FEAR [None]
